FAERS Safety Report 20894709 (Version 1)
Quarter: 2022Q2

REPORT INFORMATION
  Report Type: Spontaneous
  Country: US (occurrence: US)
  Receive Date: 20220531
  Receipt Date: 20220531
  Transmission Date: 20220721
  Serious: Yes (Other)
  Sender: FDA-Public Use
  Company Number: US-SA-SAC20220526001191

PATIENT
  Age: 64 Year
  Sex: Male

DRUGS (1)
  1. ZANTAC [Suspect]
     Active Substance: RANITIDINE HYDROCHLORIDE
     Dosage: 150 MG; FREQUENCY: OTHER
     Route: 065
     Dates: start: 200807, end: 201907

REACTIONS (1)
  - Bladder cancer stage II [Unknown]

NARRATIVE: CASE EVENT DATE: 20150601
